FAERS Safety Report 17916809 (Version 2)
Quarter: 2021Q2

REPORT INFORMATION
  Report Type: Spontaneous
  Country: JP (occurrence: JP)
  Receive Date: 20200619
  Receipt Date: 20210527
  Transmission Date: 20210717
  Serious: Yes (Death, Other)
  Sender: FDA-Public Use
  Company Number: JP-GLAXOSMITHKLINE-JP2020JPN096702

PATIENT
  Age: 6 Day
  Sex: Male
  Weight: 3 kg

DRUGS (9)
  1. EPOPROSTENOL SODIUM. [Suspect]
     Active Substance: EPOPROSTENOL SODIUM
     Indication: NEWBORN PERSISTENT PULMONARY HYPERTENSION
     Dosage: UNK
     Route: 042
  2. DOPAMIN (DOPAMINE HYDROCHLORIDE) [Suspect]
     Active Substance: DOPAMINE HYDROCHLORIDE
     Indication: NEWBORN PERSISTENT PULMONARY HYPERTENSION
     Dosage: UNK
  3. DOBUTAMINE [Suspect]
     Active Substance: DOBUTAMINE HYDROCHLORIDE
     Indication: NEWBORN PERSISTENT PULMONARY HYPERTENSION
     Dosage: UNK
  4. PLATELETS [Concomitant]
     Active Substance: HUMAN PLATELET, ALLOGENIC
     Dosage: UNK
  5. METHYLPREDNISOLONE. [Concomitant]
     Active Substance: METHYLPREDNISOLONE
     Dosage: UNK
  6. MILRINONE [Suspect]
     Active Substance: MILRINONE
     Indication: NEWBORN PERSISTENT PULMONARY HYPERTENSION
     Dosage: UNK
  7. RBC LEUKOCYTES REDUCED [Concomitant]
     Dosage: UNK
  8. ALBUMIN [Suspect]
     Active Substance: ALBUMIN HUMAN
     Indication: NEWBORN PERSISTENT PULMONARY HYPERTENSION
     Dosage: UNK
  9. ALBUMIN [Suspect]
     Active Substance: ALBUMIN HUMAN
     Dosage: UNK

REACTIONS (7)
  - Multiple organ dysfunction syndrome [Unknown]
  - Circulatory collapse [Unknown]
  - Product use issue [Unknown]
  - Drug ineffective [Unknown]
  - Newborn persistent pulmonary hypertension [Fatal]
  - Renal failure [Unknown]
  - Myeloproliferative neoplasm [Unknown]
